FAERS Safety Report 8297461-7 (Version None)
Quarter: 2012Q2

REPORT INFORMATION
  Report Type: 
  Country: None (occurrence: None)
  Receive Date: 20120419
  Receipt Date: 20120405
  Transmission Date: 20120825
  Serious: Yes (Death, Hospitalization)
  Sender: FDA-Public Use
  Company Number: NL-RANBAXY-2012R1-55515

PATIENT
  Age: 79 Year
  Sex: Male

DRUGS (2)
  1. CIPROFLOXACIN [Suspect]
     Indication: ANTIBIOTIC THERAPY
     Dosage: 500 MG, BID
     Route: 065
  2. ERLOTINIB HYDROCHLORIDE [Interacting]
     Indication: NON-SMALL CELL LUNG CANCER
     Dosage: 150MG QD
     Route: 065

REACTIONS (3)
  - INTERSTITIAL LUNG DISEASE [None]
  - DRUG LEVEL INCREASED [None]
  - DRUG INTERACTION [None]
